FAERS Safety Report 16162468 (Version 1)
Quarter: 2019Q2

REPORT INFORMATION
  Report Type: Spontaneous
  Country: US (occurrence: US)
  Receive Date: 20190404
  Receipt Date: 20190404
  Transmission Date: 20190711
  Serious: Yes (Hospitalization)
  Sender: FDA-Public Use
  Company Number: None

PATIENT
  Sex: Female

DRUGS (11)
  1. CRESTOR [Concomitant]
     Active Substance: ROSUVASTATIN CALCIUM
  2. DIGOXIN. [Concomitant]
     Active Substance: DIGOXIN
  3. LASIX [Concomitant]
     Active Substance: FUROSEMIDE
  4. SPIRONOLACT [Concomitant]
     Active Substance: SPIRONOLACTONE
  5. OXYCODONE [Concomitant]
     Active Substance: OXYCODONE
  6. ASPIRIN. [Concomitant]
     Active Substance: ASPIRIN
  7. PROLIA [Suspect]
     Active Substance: DENOSUMAB
     Indication: OSTEOPOROSIS
     Dosage: ?          OTHER FREQUENCY:Q6M;?
     Route: 058
     Dates: start: 20160329
  8. IRON SUPPLEM [Concomitant]
  9. NEXIUM [Concomitant]
     Active Substance: ESOMEPRAZOLE MAGNESIUM
  10. LEVOTHYROXIN [Concomitant]
     Active Substance: LEVOTHYROXINE
  11. METOPROL TAR [Concomitant]

REACTIONS (2)
  - Dyspnoea [None]
  - Pleural effusion [None]
